FAERS Safety Report 12838537 (Version 1)
Quarter: 2016Q4

REPORT INFORMATION
  Report Type: Spontaneous
  Country: DE (occurrence: DE)
  Receive Date: 20161012
  Receipt Date: 20161012
  Transmission Date: 20170207
  Serious: Yes (Other)
  Sender: FDA-Public Use
  Company Number: DE-AUROBINDO-AUR-APL-2016-12273

PATIENT
  Sex: Female
  Weight: 80 kg

DRUGS (10)
  1. SERTRALINE [Suspect]
     Active Substance: SERTRALINE HYDROCHLORIDE
     Indication: DEPRESSION
     Dosage: UNK
     Route: 048
     Dates: start: 20150315, end: 20150727
  2. VALDOXAN [Suspect]
     Active Substance: AGOMELATINE
     Indication: DEPRESSION
     Dosage: 25 MG, ONCE A DAY
     Route: 048
     Dates: start: 20150315, end: 20150727
  3. CEFUROXIME. [Concomitant]
     Active Substance: CEFUROXIME
     Indication: PROPHYLAXIS URINARY TRACT INFECTION
     Dosage: 1.5 G, DAILY
     Route: 042
     Dates: start: 20150722, end: 20150727
  4. UNACID                             /00903602/ [Concomitant]
     Indication: PYELONEPHRITIS
     Dosage: UNK
     Route: 065
     Dates: start: 20150721, end: 20150722
  5. FOLIO                              /00349401/ [Concomitant]
     Active Substance: CYANOCOBALAMIN\FOLIC ACID
     Indication: PROPHYLAXIS OF NEURAL TUBE DEFECT
     Dosage: 0.4 MG, ONCE A DAY
     Route: 048
  6. AGYRAX                             /00759701/ [Concomitant]
     Indication: NAUSEA
     Dosage: UNK
     Route: 048
     Dates: start: 20150501, end: 20150625
  7. PROMETHAZINE [Concomitant]
     Active Substance: PROMETHAZINE\PROMETHAZINE HYDROCHLORIDE
     Indication: PANIC ATTACK
     Dosage: 25 MG, DAILY
     Route: 048
     Dates: start: 201403
  8. IBUPROFEN. [Concomitant]
     Active Substance: IBUPROFEN
     Indication: PAIN
     Dosage: UNK UNK, ONCE A DAY
     Route: 048
     Dates: start: 20150315, end: 20150727
  9. SERTRALINE [Suspect]
     Active Substance: SERTRALINE HYDROCHLORIDE
     Indication: ANXIETY
  10. TAVOR (LORAZEPAM) [Concomitant]
     Active Substance: LORAZEPAM
     Indication: PANIC ATTACK
     Dosage: 0.5 MG, ONCE A DAY
     Route: 048
     Dates: start: 20150315, end: 20150727

REACTIONS (5)
  - Exposure during pregnancy [Recovered/Resolved]
  - Retroplacental haematoma [Recovered/Resolved]
  - Pyelonephritis [Recovered/Resolved]
  - Pyrexia [Recovered/Resolved]
  - Abortion late [Recovered/Resolved]
